FAERS Safety Report 8929181 (Version 3)
Quarter: 2013Q1

REPORT INFORMATION
  Report Type: Spontaneous
  Country: FR (occurrence: FR)
  Receive Date: 20121127
  Receipt Date: 20130213
  Transmission Date: 20140127
  Serious: Yes (Hospitalization)
  Sender: FDA-Public Use
  Company Number: PHHY2012FR107826

PATIENT
  Age: 44 Year
  Sex: Female

DRUGS (4)
  1. DOXORUBICINA TEVA [Suspect]
     Indication: LEIOMYOSARCOMA
     Dosage: 60 MG/M2 PER DAY
     Route: 042
     Dates: start: 20120828, end: 20120828
  2. YONDELIS [Suspect]
     Indication: LEIOMYOSARCOMA
     Dosage: 1100 UG/M2, PER DAY
     Route: 042
     Dates: start: 20120828, end: 20120828
  3. OXYCONTIN [Concomitant]
     Indication: LEIOMYOSARCOMA
     Dosage: 2 DF, UNK
  4. LYRICA [Concomitant]
     Indication: LEIOMYOSARCOMA

REACTIONS (1)
  - Hepatocellular injury [Recovered/Resolved]
